FAERS Safety Report 5858527-1 (Version None)
Quarter: 2008Q3

REPORT INFORMATION
  Report Type: 
  Country: None (occurrence: None)
  Receive Date: 20080826
  Receipt Date: 20080821
  Transmission Date: 20090109
  Serious: Yes (Other)
  Sender: FDA-Public Use
  Company Number: AU-PFIZER INC-2008056831

PATIENT
  Sex: Female

DRUGS (4)
  1. LIPITOR [Suspect]
     Route: 048
  2. ZOLOFT [Concomitant]
  3. AVAPRO [Concomitant]
  4. INDAPAMIDE [Concomitant]

REACTIONS (2)
  - BREAST PAIN [None]
  - BREAST SWELLING [None]
